FAERS Safety Report 7740232-8 (Version None)
Quarter: 2011Q3

REPORT INFORMATION
  Report Type: 
  Country: None (occurrence: None)
  Receive Date: 20110909
  Receipt Date: 20110902
  Transmission Date: 20111222
  Serious: Yes (Hospitalization, Other)
  Sender: FDA-Public Use
  Company Number: KR-ABBOTT-11P-090-0851857-00

PATIENT
  Age: 25 Year
  Sex: Female

DRUGS (6)
  1. MESALAMINE [Concomitant]
     Indication: PRODUCT USED FOR UNKNOWN INDICATION
     Dates: end: 20101110
  2. METRONIDAZOLE [Concomitant]
     Indication: PRODUCT USED FOR UNKNOWN INDICATION
     Dates: start: 20100503
  3. METHOTREXATE [Concomitant]
     Indication: PRODUCT USED FOR UNKNOWN INDICATION
  4. HUMIRA [Suspect]
  5. AZP [Concomitant]
     Indication: PRODUCT USED FOR UNKNOWN INDICATION
     Dates: start: 20080701, end: 20101110
  6. HUMIRA [Suspect]
     Indication: CROHN'S DISEASE
     Dates: start: 20101026

REACTIONS (3)
  - PANCYTOPENIA [None]
  - PNEUMONIA [None]
  - HENOCH-SCHONLEIN PURPURA [None]
